FAERS Safety Report 6956443-5 (Version None)
Quarter: 2010Q3

REPORT INFORMATION
  Report Type: 
  Country: None (occurrence: None)
  Receive Date: 20100830
  Receipt Date: 20100825
  Transmission Date: 20110219
  Serious: Yes (Hospitalization)
  Sender: FDA-Public Use
  Company Number: Z0003295A

PATIENT
  Age: 59 Year
  Sex: Female
  Weight: 117.7 kg

DRUGS (6)
  1. CHLORAMBUCIL [Suspect]
     Route: 048
     Dates: start: 20091224
  2. CEFEPIME [Concomitant]
     Indication: UROSEPSIS
     Dosage: 1G TWICE PER DAY
     Route: 042
     Dates: start: 20100218
  3. VANCOMYCIN HCL [Concomitant]
     Indication: UROSEPSIS
     Dosage: 1.25G PER DAY
     Route: 042
     Dates: start: 20100218
  4. METRONIDAZOLE [Concomitant]
     Indication: UROSEPSIS
     Dosage: 500MG THREE TIMES PER DAY
     Route: 042
     Dates: start: 20100218
  5. ZOSYN [Concomitant]
     Indication: UROSEPSIS
     Dosage: 2.25G FOUR TIMES PER DAY
     Route: 042
     Dates: start: 20100218
  6. MICAFUNGIN [Concomitant]
     Indication: UROSEPSIS
     Dosage: 100MG PER DAY
     Route: 042
     Dates: start: 20100218

REACTIONS (1)
  - RENAL FAILURE [None]
